FAERS Safety Report 6070348-6 (Version None)
Quarter: 2009Q1

REPORT INFORMATION
  Report Type: 
  Country: None (occurrence: None)
  Receive Date: 20090209
  Receipt Date: 20090202
  Transmission Date: 20090719
  Serious: Yes (Hospitalization)
  Sender: FDA-Public Use
  Company Number: US-BRISTOL-MYERS SQUIBB COMPANY-14491708

PATIENT
  Age: 63 Year
  Sex: Male
  Weight: 94 kg

DRUGS (9)
  1. ERBITUX [Suspect]
     Indication: HEAD AND NECK CANCER
     Dosage: FIRST COURSE : 23DEC2008
     Dates: start: 20090119, end: 20090119
  2. CISPLATIN [Suspect]
     Indication: HEAD AND NECK CANCER
     Dosage: FIRST COURSE : 23DEC2008
     Dates: start: 20090119, end: 20090119
  3. RADIATION THERAPY [Suspect]
     Indication: HEAD AND NECK CANCER
     Dosage: FIRST TREATMENT: 23DEC08, 1 DOSAGE FORM=5600 CGY; FRACTIONS=28,ELASPSED DAYS=32.
     Dates: start: 20090129, end: 20090129
  4. HUMALOG [Concomitant]
  5. LANTUS [Concomitant]
  6. METFORMIN HCL [Concomitant]
  7. OMEPRAZOLE [Concomitant]
  8. GLYBURIDE [Concomitant]
  9. ZOCOR [Concomitant]

REACTIONS (17)
  - ANOREXIA [None]
  - BLOOD CREATININE ABNORMAL [None]
  - DEHYDRATION [None]
  - DIARRHOEA [None]
  - EPISTAXIS [None]
  - EXFOLIATIVE RASH [None]
  - FATIGUE [None]
  - HAEMOGLOBIN ABNORMAL [None]
  - HYPERGLYCAEMIA [None]
  - HYPOALBUMINAEMIA [None]
  - HYPOCALCAEMIA [None]
  - HYPOKALAEMIA [None]
  - HYPOMAGNESAEMIA [None]
  - HYPOPHOSPHATAEMIA [None]
  - NAUSEA [None]
  - STOMATITIS [None]
  - VOMITING [None]
